FAERS Safety Report 6011174-3 (Version None)
Quarter: 2008Q4

REPORT INFORMATION
  Report Type: 
  Country: None (occurrence: None)
  Receive Date: 20081218
  Receipt Date: 20081210
  Transmission Date: 20090506
  Serious: Yes (Life-Threatening, Other)
  Sender: FDA-Public Use
  Company Number: DE-MERCK-0812DEU00187

PATIENT
  Age: 34 Year
  Sex: Male

DRUGS (63)
  1. PRIMAXIN [Suspect]
     Indication: PANCREATITIS
     Route: 041
     Dates: start: 20070517, end: 20070531
  2. ROCEPHIN [Suspect]
     Indication: PANCREATITIS
     Route: 041
     Dates: start: 20070513, end: 20070516
  3. NOVALGIN [Suspect]
     Indication: PAIN
     Route: 041
     Dates: start: 20070523, end: 20070524
  4. NOVALGIN [Suspect]
     Route: 041
     Dates: start: 20070530, end: 20070530
  5. RADIOGRAPHIC CONTRAST MEDIUM (UNSPECIFIED) [Suspect]
     Route: 041
     Dates: start: 20070513, end: 20070522
  6. RADIOGRAPHIC CONTRAST MEDIUM (UNSPECIFIED) [Suspect]
     Route: 042
     Dates: start: 20070523, end: 20070523
  7. RADIOGRAPHIC CONTRAST MEDIUM (UNSPECIFIED) [Suspect]
     Route: 042
     Dates: start: 20070531, end: 20070531
  8. SODIUM CHLORIDE [Concomitant]
     Indication: ELECTROLYTE SUBSTITUTION THERAPY
     Route: 041
     Dates: start: 20070514, end: 20070515
  9. SODIUM CHLORIDE [Concomitant]
     Route: 042
     Dates: start: 20070523, end: 20070530
  10. SODIUM CHLORIDE [Concomitant]
     Route: 042
     Dates: start: 20070602, end: 20070602
  11. ELECTROLYTES (UNSPECIFIED) [Concomitant]
     Indication: ELECTROLYTE SUBSTITUTION THERAPY
     Route: 041
     Dates: start: 20070513, end: 20070513
  12. ELECTROLYTES (UNSPECIFIED) [Concomitant]
     Route: 042
     Dates: start: 20070523, end: 20070530
  13. ELECTROLYTES (UNSPECIFIED) [Concomitant]
     Route: 042
     Dates: start: 20070602, end: 20070602
  14. PYRIDOXINE [Concomitant]
     Indication: ELECTROLYTE SUBSTITUTION THERAPY
     Route: 041
     Dates: start: 20070513, end: 20070513
  15. PYRIDOXINE [Concomitant]
     Route: 041
     Dates: start: 20070523
  16. KETAMINE HYDROCHLORIDE [Concomitant]
     Indication: SEDATIVE THERAPY
     Route: 041
     Dates: start: 20070515, end: 20070521
  17. KETAMINE HYDROCHLORIDE [Concomitant]
     Route: 041
     Dates: start: 20070523, end: 20070529
  18. FUROSEMIDE [Concomitant]
     Indication: DIURETIC THERAPY
     Route: 041
     Dates: start: 20070515, end: 20070520
  19. FUROSEMIDE [Concomitant]
     Route: 041
     Dates: start: 20070523, end: 20070525
  20. FUROSEMIDE [Concomitant]
     Route: 041
     Dates: start: 20070527, end: 20070530
  21. HEPARIN [Suspect]
     Indication: THROMBOSIS PROPHYLAXIS
     Route: 041
     Dates: start: 20070515, end: 20070602
  22. KALINOR [Concomitant]
     Indication: ELECTROLYTE SUBSTITUTION THERAPY
     Route: 041
     Dates: start: 20070515, end: 20070520
  23. KALINOR [Concomitant]
     Route: 041
     Dates: start: 20070523, end: 20070602
  24. SUFENTANIL [Suspect]
     Indication: SEDATIVE THERAPY
     Route: 041
     Dates: start: 20070515, end: 20070516
  25. SUFENTANIL [Suspect]
     Route: 041
     Dates: start: 20070521, end: 20070521
  26. SUFENTANIL [Suspect]
     Route: 041
     Dates: start: 20070523, end: 20070602
  27. INSULIN [Suspect]
     Indication: HYPERGLYCAEMIA
     Route: 051
     Dates: start: 20070515
  28. MIDAZOLAM HCL [Concomitant]
     Route: 041
     Dates: start: 20070516, end: 20070529
  29. THIAMINE [Concomitant]
     Route: 041
     Dates: start: 20070516
  30. CIPRO [Suspect]
     Indication: PANCREATITIS
     Route: 041
     Dates: start: 20070517, end: 20070522
  31. MOVICOL [Concomitant]
     Route: 048
     Dates: start: 20070518, end: 20070523
  32. MOVICOL [Concomitant]
     Route: 048
     Dates: start: 20070530, end: 20070604
  33. HYDROCORTISONE [Suspect]
     Route: 041
     Dates: start: 20070523, end: 20070602
  34. VANCOMYCIN [Suspect]
     Indication: PANCREATITIS
     Route: 041
     Dates: start: 20070523, end: 20070603
  35. FLUCONAZOLE [Suspect]
     Indication: PANCREATITIS
     Route: 041
     Dates: start: 20070523, end: 20070603
  36. METOCLOPRAMIDE [Suspect]
     Indication: NAUSEA
     Route: 041
     Dates: start: 20070523, end: 20070605
  37. METOCLOPRAMIDE [Suspect]
     Route: 048
     Dates: start: 20070606, end: 20070609
  38. PANTOZOL [Suspect]
     Indication: PROPHYLAXIS AGAINST GASTROINTESTINAL ULCER
     Route: 041
     Dates: start: 20070523, end: 20070605
  39. PANTOZOL [Suspect]
     Route: 048
     Dates: start: 20070606
  40. CATAPRESAN [Suspect]
     Route: 041
     Dates: start: 20070523, end: 20070604
  41. CATAPRESAN [Suspect]
     Route: 041
     Dates: start: 20070606, end: 20070610
  42. FOLIC ACID [Concomitant]
     Route: 041
     Dates: start: 20070523
  43. ALBUTEROL [Suspect]
     Indication: DYSPNOEA
     Dates: start: 20070523
  44. UNIZINK [Concomitant]
     Route: 041
     Dates: start: 20070523
  45. ELECTROLYTES (UNSPECIFIED) [Concomitant]
     Route: 041
     Dates: start: 20070523
  46. CERNEVIT-12 [Concomitant]
     Route: 041
     Dates: start: 20070523
  47. GASTROGRAFIN [Concomitant]
     Route: 041
     Dates: start: 20070524, end: 20070524
  48. GASTROGRAFIN [Concomitant]
     Route: 041
     Dates: start: 20070529, end: 20070529
  49. PERFALGAN [Suspect]
     Indication: PYREXIA
     Route: 041
     Dates: start: 20070526, end: 20070527
  50. PERFALGAN [Suspect]
     Route: 041
     Dates: start: 20070529, end: 20070529
  51. PERFALGAN [Suspect]
     Route: 041
     Dates: start: 20070603, end: 20070603
  52. HALDOL [Suspect]
     Indication: ALCOHOL WITHDRAWAL SYNDROME
     Route: 041
     Dates: start: 20070526, end: 20070605
  53. NEPRESOL (DIHYDRALAZINE SULFATE) [Suspect]
     Indication: HYPERTENSION
     Route: 041
     Dates: start: 20070529, end: 20070531
  54. [THERAPY UNSPECIFIED] [Concomitant]
     Route: 041
     Dates: start: 20070530, end: 20070530
  55. ZITHROMAX [Suspect]
     Indication: PANCREATITIS
     Route: 041
     Dates: start: 20070530, end: 20070601
  56. RIVOTRIL [Suspect]
     Indication: RESTLESSNESS
     Route: 041
     Dates: start: 20070531, end: 20070531
  57. TAZOBACTAM [Suspect]
     Indication: PANCREATITIS
     Route: 041
     Dates: start: 20070531, end: 20070603
  58. POTASSIUM BICARBONATE AND POTASSIUM CITRATE [Concomitant]
     Route: 048
     Dates: start: 20070603, end: 20070605
  59. ENOXAPARIN SODIUM [Suspect]
     Indication: THROMBOSIS PROPHYLAXIS
     Route: 058
     Dates: start: 20070603
  60. TAVOR (LORAZEPAM) [Suspect]
     Indication: ALCOHOL WITHDRAWAL SYNDROME
     Route: 041
     Dates: start: 20070603
  61. OLICLINOMEL [Concomitant]
     Route: 041
     Dates: start: 20070603
  62. MEROPENEM [Suspect]
     Indication: PANCREATITIS
     Route: 041
     Dates: start: 20070604
  63. ATOSIL [Concomitant]
     Indication: ALCOHOL WITHDRAWAL SYNDROME
     Route: 041
     Dates: start: 20070609, end: 20070610

REACTIONS (10)
  - ERYTHEMA [None]
  - HYPERTENSION [None]
  - MULTI-ORGAN FAILURE [None]
  - NAUSEA [None]
  - OEDEMA PERIPHERAL [None]
  - PAIN [None]
  - PYREXIA [None]
  - RESPIRATORY FAILURE [None]
  - RESTLESSNESS [None]
  - STEVENS-JOHNSON SYNDROME [None]
